FAERS Safety Report 8351517-9 (Version None)
Quarter: 2012Q2

REPORT INFORMATION
  Report Type: 
  Country: None (occurrence: None)
  Receive Date: 20120511
  Receipt Date: 20120504
  Transmission Date: 20120825
  Serious: Yes (Other)
  Sender: FDA-Public Use
  Company Number: US-MYLANLABS-2012S1009235

PATIENT
  Age: 81 Year
  Sex: Female

DRUGS (2)
  1. CARVEDILOL [Suspect]
     Indication: MITRAL VALVE PROLAPSE
     Route: 048
     Dates: start: 20111201, end: 20111201
  2. TEMAZEPAM [Concomitant]
     Indication: INSOMNIA
     Route: 048

REACTIONS (2)
  - PALPITATIONS [None]
  - BLOOD SODIUM DECREASED [None]
